FAERS Safety Report 5368464-7 (Version None)
Quarter: 2007Q2

REPORT INFORMATION
  Report Type: 
  Country: None (occurrence: None)
  Receive Date: 20070625
  Receipt Date: 20070611
  Transmission Date: 20071010
  Serious: Yes (Death)
  Sender: FDA-Public Use
  Company Number: FR-ELI_LILLY_AND_COMPANY-FR200705003093

PATIENT
  Age: 78 Year
  Sex: Female

DRUGS (11)
  1. FORTEO [Suspect]
     Indication: OSTEOPOROSIS
     Dosage: 20 UG, DAILY (1/D)
     Route: 058
     Dates: start: 20051209
  2. PREVISCAN [Concomitant]
     Route: 048
  3. ATACAND [Concomitant]
     Route: 048
  4. CORDARONE [Concomitant]
     Route: 048
  5. LEVOTHYROXINE SODIUM [Concomitant]
     Route: 048
  6. OXEOL [Concomitant]
     Route: 048
  7. ATARAX [Concomitant]
     Route: 048
  8. NORSET [Concomitant]
     Route: 048
  9. SERETIDE [Concomitant]
  10. VENTOLIN [Concomitant]
  11. NITRODERM [Concomitant]

REACTIONS (2)
  - CARDIAC FAILURE [None]
  - RESPIRATORY FAILURE [None]
